FAERS Safety Report 9284395 (Version 2)
Quarter: 2013Q3

REPORT INFORMATION
  Report Type: Report from Study
  Country: US (occurrence: US)
  Receive Date: 20130510
  Receipt Date: 20130809
  Transmission Date: 20140515
  Serious: Yes (Other)
  Sender: FDA-Public Use
  Company Number: US-US-EMD SERONO, INC.-7206631

PATIENT
  Age: 26 Year
  Sex: Female

DRUGS (6)
  1. REBIF [Suspect]
     Indication: PRODUCT USED FOR UNKNOWN INDICATION
     Route: 058
     Dates: start: 20090915, end: 20120803
  2. REBIF [Suspect]
     Route: 058
     Dates: start: 20130403
  3. REBIF [Suspect]
     Route: 058
  4. REBIF [Suspect]
     Route: 058
     Dates: start: 20130501
  5. REBIF [Suspect]
  6. IBUPROFEN [Concomitant]
     Indication: MALAISE

REACTIONS (11)
  - Hepatitis [Not Recovered/Not Resolved]
  - Hepatic cyst [Not Recovered/Not Resolved]
  - Gastric infection [Unknown]
  - Migraine [Unknown]
  - Dehydration [Unknown]
  - White blood cell count increased [Recovered/Resolved]
  - Mobility decreased [Unknown]
  - Feeling hot [Unknown]
  - Malaise [Unknown]
  - Injection site erythema [Unknown]
  - Injection site pain [Unknown]
